FAERS Safety Report 24027940 (Version 1)
Quarter: 2024Q2

REPORT INFORMATION
  Report Type: Spontaneous
  Country: PT (occurrence: PT)
  Receive Date: 20240628
  Receipt Date: 20240628
  Transmission Date: 20240715
  Serious: Yes (Other)
  Sender: FDA-Public Use
  Company Number: PT-ASTELLAS-2024US018076

PATIENT
  Age: 70 Year
  Sex: Male

DRUGS (1)
  1. ENFORTUMAB VEDOTIN [Suspect]
     Active Substance: ENFORTUMAB VEDOTIN
     Indication: Transitional cell carcinoma
     Dosage: UNK UNK, CYCLIC
     Route: 065
     Dates: start: 20220906, end: 20230418

REACTIONS (3)
  - Malignant neoplasm progression [Unknown]
  - Acute kidney injury [Unknown]
  - Pruritus [Unknown]
